FAERS Safety Report 10067668 (Version 1)
Quarter: 2014Q2

REPORT INFORMATION
  Report Type: Spontaneous
  Country: PR (occurrence: PR)
  Receive Date: 20140409
  Receipt Date: 20140409
  Transmission Date: 20141212
  Serious: Yes (Hospitalization)
  Sender: FDA-Public Use
  Company Number: PR-BAYER-2014-047197

PATIENT
  Sex: Female

DRUGS (1)
  1. ADEMPAS [Suspect]
     Indication: PULMONARY HYPERTENSION
     Dosage: DAILY DOSE 3 MG
     Route: 048

REACTIONS (1)
  - Haemorrhage [None]
